FAERS Safety Report 6999598 (Version 4)
Quarter: 2018Q1

REPORT INFORMATION
  Report Type: Report from Study
  Country: US (occurrence: US)
  Receive Date: 20090521
  Receipt Date: 20180104
  Transmission Date: 20180509
  Serious: Yes (Death, Hospitalization, Other)
  Sender: FDA-Public Use
  Company Number: US-BRISTOL-MYERS SQUIBB COMPANY-14630016

PATIENT
  Age: 81 Year
  Sex: Male
  Weight: 99.9 kg

DRUGS (5)
  1. CLONIDINE. [Concomitant]
     Active Substance: CLONIDINE
     Indication: PRODUCT USED FOR UNKNOWN INDICATION
     Route: 065
  2. CETUXIMAB. [Suspect]
     Active Substance: CETUXIMAB
     Indication: OESOPHAGEAL ADENOCARCINOMA
     Route: 065
  3. BUDESONIDE. [Concomitant]
     Active Substance: BUDESONIDE
     Indication: PRODUCT USED FOR UNKNOWN INDICATION
     Route: 065
  4. CISPLATIN. [Suspect]
     Active Substance: CISPLATIN
     Indication: OESOPHAGEAL ADENOCARCINOMA
     Dosage: FIRST DOSE: 24MAR09
     Route: 065
     Dates: start: 20090421, end: 20090421
  5. PACLITAXEL. [Suspect]
     Active Substance: PACLITAXEL
     Indication: OESOPHAGEAL ADENOCARCINOMA
     Dosage: FIRST DOSE: 24MAR09,50 MG/M2
     Route: 065
     Dates: start: 20090421, end: 20090421

REACTIONS (5)
  - Dyspnoea [Unknown]
  - Hyponatraemia [Unknown]
  - Acute respiratory distress syndrome [Fatal]
  - Hypoxia [Unknown]
  - Embolism [Unknown]

NARRATIVE: CASE EVENT DATE: 20090508
